FAERS Safety Report 6216322-8 (Version None)
Quarter: 2009Q2

REPORT INFORMATION
  Report Type: 
  Country: None (occurrence: None)
  Receive Date: 20090605
  Receipt Date: 20090527
  Transmission Date: 20091009
  Serious: Yes (Life-Threatening)
  Sender: FDA-Public Use
  Company Number: FR-JNJFOC-20090601199

PATIENT
  Sex: Male

DRUGS (6)
  1. TOPALGIC [Suspect]
     Indication: PAIN
     Route: 048
  2. DI-ANTALVIC [Interacting]
     Indication: PAIN
     Route: 048
  3. NICARDIPINE HCL [Concomitant]
     Indication: HYPERTENSION
     Route: 065
  4. OGASTORO [Concomitant]
     Indication: DRUG USE FOR UNKNOWN INDICATION
     Route: 065
  5. PYOSTACINE [Concomitant]
     Indication: DRUG USE FOR UNKNOWN INDICATION
     Route: 065
  6. CALCIPARINE [Concomitant]
     Indication: DRUG USE FOR UNKNOWN INDICATION
     Route: 065

REACTIONS (5)
  - BRADYCARDIA [None]
  - DRUG INTERACTION [None]
  - DYSPNOEA [None]
  - HYPOTENSION [None]
  - SOMNOLENCE [None]
